FAERS Safety Report 5911783-3 (Version None)
Quarter: 2008Q4

REPORT INFORMATION
  Report Type: 
  Country: None (occurrence: None)
  Receive Date: 20081008
  Receipt Date: 20080926
  Transmission Date: 20090506
  Serious: Yes (Other)
  Sender: FDA-Public Use
  Company Number: JP-JNJFOC-20080601357

PATIENT
  Sex: Female

DRUGS (11)
  1. TOPINA [Suspect]
     Indication: HEADACHE
     Route: 048
  2. TRYPTANOL [Concomitant]
     Indication: DRUG USE FOR UNKNOWN INDICATION
  3. LACTULOSE [Concomitant]
     Indication: DRUG USE FOR UNKNOWN INDICATION
     Route: 048
  4. ALDACTONE [Concomitant]
     Indication: DRUG USE FOR UNKNOWN INDICATION
  5. HALCION [Concomitant]
     Indication: DRUG USE FOR UNKNOWN INDICATION
  6. MYSLEE [Concomitant]
     Indication: DRUG USE FOR UNKNOWN INDICATION
  7. HEPAN ED [Concomitant]
     Indication: MEDICAL DIET
  8. NIPOLAZIN [Concomitant]
     Indication: DRUG USE FOR UNKNOWN INDICATION
  9. LANSOPRAZOLE [Concomitant]
     Indication: DRUG USE FOR UNKNOWN INDICATION
  10. CALONAL [Concomitant]
     Indication: DRUG USE FOR UNKNOWN INDICATION
  11. ZOMIG [Concomitant]
     Indication: DRUG USE FOR UNKNOWN INDICATION

REACTIONS (4)
  - ACIDOSIS [None]
  - DEPRESSED LEVEL OF CONSCIOUSNESS [None]
  - HYPERAMMONAEMIA [None]
  - VOMITING [None]
